FAERS Safety Report 15280256 (Version 1)
Quarter: 2018Q4

REPORT INFORMATION
  Report Type: Spontaneous
  Country: US (occurrence: US)
  Receive Date: 20180815
  Receipt Date: 20180815
  Transmission Date: 20190204
  Serious: No
  Sender: FDA-Public Use
  Company Number: US-RIGEL PHARMACEUTICALS, INC.-2018FOS000017

PATIENT

DRUGS (2)
  1. TAVALISSE [Suspect]
     Active Substance: FOSTAMATINIB
     Indication: IMMUNE THROMBOCYTOPENIC PURPURA
     Dosage: 10 MG, BID
     Route: 048
     Dates: start: 2016
  2. TAVALISSE [Suspect]
     Active Substance: FOSTAMATINIB
     Dosage: 15 UNK
     Route: 048

REACTIONS (2)
  - Drug ineffective [Unknown]
  - Platelet count decreased [Unknown]
